FAERS Safety Report 5281255-0 (Version None)
Quarter: 2007Q1

REPORT INFORMATION
  Report Type: 
  Country: None (occurrence: None)
  Receive Date: 20070326
  Receipt Date: 20070309
  Transmission Date: 20070707
  Serious: Yes (Life-Threatening, Hospitalization)
  Sender: FDA-Public Use
  Company Number: 8021731

PATIENT
  Age: 51 Year
  Sex: Female
  Weight: 53 kg

DRUGS (5)
  1. KEPPRA [Suspect]
     Indication: EPILEPSY
     Dosage: 500 MG 4/D PO
     Route: 048
     Dates: start: 20061220, end: 20070109
  2. DOXYCYCLIN /0005701/ [Concomitant]
  3. LEVOTHYROXINE SODIUM [Concomitant]
  4. NEXIUM [Concomitant]
  5. KALINOR-BRAUSETABLETTEN [Concomitant]

REACTIONS (5)
  - AGRANULOCYTOSIS [None]
  - CONDITION AGGRAVATED [None]
  - LYMPHOCYTE PERCENTAGE DECREASED [None]
  - RED BLOOD CELL COUNT DECREASED [None]
  - WHITE BLOOD CELL COUNT DECREASED [None]
